FAERS Safety Report 6169240-8 (Version None)
Quarter: 2009Q2

REPORT INFORMATION
  Report Type: 
  Country: None (occurrence: None)
  Receive Date: 20090427
  Receipt Date: 20090423
  Transmission Date: 20091009
  Serious: Yes (Hospitalization)
  Sender: FDA-Public Use
  Company Number: US-GILEAD-2009-0021524

PATIENT
  Age: 50 Year
  Sex: Male

DRUGS (20)
  1. LETAIRIS [Suspect]
     Indication: PULMONARY ARTERIAL HYPERTENSION
     Route: 048
     Dates: start: 20090319
  2. FLOLAN [Concomitant]
  3. FUROSEMIDE [Concomitant]
  4. AMILORIDE HYDROCHLORIDE [Concomitant]
  5. NIFEDIAC [Concomitant]
  6. NORVASC [Concomitant]
     Indication: HYPERTENSION
  7. ANDROGEL [Concomitant]
  8. ENULOSE [Concomitant]
  9. METHADONE [Concomitant]
  10. BACTRIM [Concomitant]
  11. INSULIN ASPART [Concomitant]
     Indication: HYPERGLYCAEMIA
  12. PREDNISON [Concomitant]
     Indication: PROPHYLAXIS AGAINST TRANSPLANT REJECTION
  13. CELLCEPT [Concomitant]
     Indication: PROPHYLAXIS AGAINST TRANSPLANT REJECTION
  14. PERCOCET [Concomitant]
     Indication: PAIN
  15. PROGRAF [Concomitant]
  16. VALCYTE [Concomitant]
     Indication: ANTIVIRAL PROPHYLAXIS
  17. CALCIUM [Concomitant]
  18. ONE-A DAY [Concomitant]
  19. ZINC SULFATE [Concomitant]
  20. BISACODYLE [Concomitant]

REACTIONS (1)
  - CHRONIC HEPATIC FAILURE [None]
